FAERS Safety Report 17641377 (Version 18)
Quarter: 2023Q1

REPORT INFORMATION
  Report Type: Report from Study
  Country: CA (occurrence: CA)
  Receive Date: 20200407
  Receipt Date: 20230123
  Transmission Date: 20230417
  Serious: Yes (Hospitalization, Other)
  Sender: FDA-Public Use
  Company Number: PHHY2019CA190903

PATIENT
  Age: 73 Year
  Sex: Female

DRUGS (7)
  1. SANDOSTATIN LAR DEPOT [Suspect]
     Active Substance: OCTREOTIDE ACETATE
     Indication: Carcinoid tumour
     Dosage: 40 MG, Q3W
     Route: 030
     Dates: start: 20190812
  2. SANDOSTATIN LAR DEPOT [Suspect]
     Active Substance: OCTREOTIDE ACETATE
     Dosage: 30 MG, QMO
     Route: 030
     Dates: start: 20191101
  3. SANDOSTATIN LAR DEPOT [Suspect]
     Active Substance: OCTREOTIDE ACETATE
     Dosage: 30 MG, QMO
     Route: 030
  4. CHOLECALCIFEROL [Concomitant]
     Active Substance: CHOLECALCIFEROL
     Indication: Product used for unknown indication
     Dosage: UNK
     Route: 048
  5. TAMOXIFEN [Concomitant]
     Active Substance: TAMOXIFEN
     Indication: Product used for unknown indication
     Dosage: UNK
     Route: 048
  6. CALCIUM CARBONATE\CHOLECALCIFEROL [Concomitant]
     Active Substance: CALCIUM CARBONATE\CHOLECALCIFEROL
     Indication: Product used for unknown indication
     Dosage: UNK
     Route: 065
  7. FUROSEMIDE [Concomitant]
     Active Substance: FUROSEMIDE
     Indication: Product used for unknown indication
     Dosage: UNK
     Route: 048

REACTIONS (22)
  - Abdominal pain lower [Unknown]
  - Nausea [Unknown]
  - Pulmonary oedema [Unknown]
  - Ascites [Unknown]
  - Immunodeficiency [Unknown]
  - Neoplasm malignant [Unknown]
  - Body temperature decreased [Unknown]
  - Blood pressure decreased [Unknown]
  - Faeces soft [Unknown]
  - Blood pressure increased [Unknown]
  - Hypertension [Unknown]
  - Blood pressure diastolic increased [Unknown]
  - Hot flush [Unknown]
  - Malaise [Unknown]
  - Muscular weakness [Unknown]
  - Peripheral swelling [Unknown]
  - General physical health deterioration [Unknown]
  - Mobility decreased [Unknown]
  - Inappropriate schedule of product administration [Unknown]
  - Needle issue [Unknown]
  - Vomiting [Unknown]
  - Injection site pain [Recovered/Resolved]

NARRATIVE: CASE EVENT DATE: 20190812
